FAERS Safety Report 9410598 (Version 2)
Quarter: 2013Q3

REPORT INFORMATION
  Report Type: Other
  Country: JP (occurrence: JP)
  Receive Date: 20130719
  Receipt Date: 20130807
  Transmission Date: 20140515
  Serious: Yes (Other)
  Sender: FDA-Public Use
  Company Number: JP-BRISTOL-MYERS SQUIBB COMPANY-19120997

PATIENT
  Age: 58 Year
  Sex: Female

DRUGS (4)
  1. KENACORT-A INJ [Suspect]
     Indication: RHEUMATOID ARTHRITIS
     Dosage: NO OF INJ:22
     Route: 014
  2. METHOTREXATE [Concomitant]
     Indication: RHEUMATOID ARTHRITIS
  3. INFLIXIMAB [Concomitant]
     Indication: RHEUMATOID ARTHRITIS
  4. PREDNISONE [Concomitant]

REACTIONS (1)
  - Articular calcification [Unknown]
